FAERS Safety Report 10442122 (Version 1)
Quarter: 2014Q2

REPORT INFORMATION
  Report Type: Spontaneous
  Country: US (occurrence: None)
  Receive Date: 20140616
  Receipt Date: 20140616
  Transmission Date: 20141212
  Serious: Yes (Hospitalization, Other)
  Sender: FDA-Public Use
  Company Number: 2012-003336

PATIENT
  Age: 82 Year
  Sex: Female

DRUGS (5)
  1. ACTONEL (RISEDRONATE SODIUM) TABLET, UNKMG [Suspect]
     Indication: OSTEOPOROSIS
     Route: 048
  2. FOSAMAX (ALENDRONATE SODIUM) [Suspect]
     Indication: OSTEOPOROSIS
  3. FOSAMAX D [Suspect]
     Indication: OSTEOPOROSIS
     Route: 048
  4. ALENDRONATE (ALENDRONATE SODIUM) [Suspect]
     Indication: OSTEOPOROSIS
     Route: 048
  5. RISEDRONATE SODIUM [Suspect]
     Indication: OSTEOPOROSIS
     Route: 048

REACTIONS (6)
  - Femur fracture [None]
  - Wrist fracture [None]
  - Fall [None]
  - Skeletal injury [None]
  - Pain [None]
  - Low turnover osteopathy [None]
